FAERS Safety Report 5993908-7 (Version None)
Quarter: 2008Q4

REPORT INFORMATION
  Report Type: 
  Country: None (occurrence: None)
  Receive Date: 20081212
  Receipt Date: 20080911
  Transmission Date: 20090506
  Serious: No
  Sender: FDA-Public Use
  Company Number: US-ABBOTT-08P-163-0467418-00

PATIENT
  Sex: Female
  Weight: 73.548 kg

DRUGS (14)
  1. HUMIRA [Suspect]
     Indication: CROHN'S DISEASE
     Route: 058
     Dates: end: 20080501
  2. HUMIRA [Suspect]
     Route: 058
     Dates: start: 20080501, end: 20080724
  3. HUMIRA [Suspect]
     Dates: start: 20080828
  4. PREGABALIN [Interacting]
     Indication: PAIN
     Route: 048
     Dates: start: 20080801
  5. PREGABALIN [Interacting]
     Indication: HERPES ZOSTER
  6. LANTUS NOVOLOG [Concomitant]
     Indication: TYPE 2 DIABETES MELLITUS
     Route: 050
  7. INSULIN ASPART [Concomitant]
     Indication: TYPE 2 DIABETES MELLITUS
     Dosage: SLIDING SCALE, 3 IN 1 D
  8. METFORMIN HCL [Concomitant]
     Indication: TYPE 2 DIABETES MELLITUS
     Route: 048
  9. PREDNISONE TAB [Concomitant]
     Indication: CROHN'S DISEASE
     Route: 048
     Dates: start: 20080601
  10. FUROSEMIDE [Concomitant]
     Indication: DRUG USE FOR UNKNOWN INDICATION
     Route: 048
  11. POTASSIUM CHLORIDE [Concomitant]
     Indication: DRUG USE FOR UNKNOWN INDICATION
     Dosage: 2 TABS EVERY NIGHT
     Route: 048
  12. SERTRALINE [Concomitant]
     Indication: DEPRESSION
     Dosage: 2 TABS EVERY NIGHT
     Route: 048
  13. BUSPIRONE HCL [Concomitant]
     Indication: DRUG USE FOR UNKNOWN INDICATION
     Route: 048
  14. ESZOPICLONE [Concomitant]
     Indication: INSOMNIA
     Dosage: EVERY NIGHT
     Route: 048

REACTIONS (14)
  - ANIMAL BITE [None]
  - DRUG INTERACTION [None]
  - DYSPHAGIA [None]
  - FURUNCLE [None]
  - GINGIVAL SWELLING [None]
  - HERPES ZOSTER [None]
  - LOCALISED INFECTION [None]
  - MOUTH ULCERATION [None]
  - OEDEMA MOUTH [None]
  - PARAESTHESIA [None]
  - PYREXIA [None]
  - SWOLLEN TONGUE [None]
  - TONGUE BITING [None]
  - URTICARIA [None]
